FAERS Safety Report 10682943 (Version 1)
Quarter: 2014Q4

REPORT INFORMATION
  Report Type: Spontaneous
  Country: US (occurrence: US)
  Receive Date: 20141230
  Receipt Date: 20141230
  Transmission Date: 20150529
  Serious: Yes (Death)
  Sender: FDA-Public Use
  Company Number: US-BAUSCH-BL-2014-011141

PATIENT
  Age: 44 Year
  Sex: Female

DRUGS (1)
  1. XENAZINE [Suspect]
     Active Substance: TETRABENAZINE
     Indication: HUNTINGTON^S DISEASE
     Dosage: ONE TABLET IN THE MORNING, TWO TABLETS AT NIGHT
     Route: 048
     Dates: start: 200910

REACTIONS (1)
  - Death [Fatal]

NARRATIVE: CASE EVENT DATE: 20141215
